FAERS Safety Report 12305078 (Version 1)
Quarter: 2016Q2

REPORT INFORMATION
  Report Type: Spontaneous
  Country: US (occurrence: US)
  Receive Date: 20160426
  Receipt Date: 20160426
  Transmission Date: 20160815
  Serious: No
  Sender: FDA-Public Use
  Company Number: US-MYLANLABS-2016M1001373

PATIENT
  Sex: Female
  Weight: 66.67 kg

DRUGS (1)
  1. VERAPAMIL HYDROCHLORIDE EXTENDED-RELEASE TABLETS, USP [Suspect]
     Active Substance: VERAPAMIL HYDROCHLORIDE
     Indication: HYPERTENSION
     Dosage: 120 MG, QAM
     Route: 048
     Dates: start: 2014

REACTIONS (2)
  - Reaction to drug excipients [Not Recovered/Not Resolved]
  - Malaise [Not Recovered/Not Resolved]
